FAERS Safety Report 9004579 (Version 2)
Quarter: 2013Q1

REPORT INFORMATION
  Report Type: Spontaneous
  Country: US (occurrence: US)
  Receive Date: 20130108
  Receipt Date: 20130114
  Transmission Date: 20140127
  Serious: Yes (Death)
  Sender: FDA-Public Use
  Company Number: US-PFIZER INC-2013004161

PATIENT
  Age: 31 Year
  Sex: Female

DRUGS (5)
  1. FENTANYL [Suspect]
     Route: 048
  2. ALPRAZOLAM [Suspect]
     Route: 048
  3. SERTRALINE HCL [Suspect]
     Route: 048
  4. ZOLPIDEM [Suspect]
     Route: 048
  5. CLONAZEPAM [Suspect]
     Route: 048

REACTIONS (3)
  - Drug abuse [Fatal]
  - Cardiac arrest [Fatal]
  - Respiratory arrest [Fatal]
